FAERS Safety Report 20356459 (Version 1)
Quarter: 2022Q1

REPORT INFORMATION
  Report Type: Spontaneous
  Country: US (occurrence: None)
  Receive Date: 20220119
  Receipt Date: 20220119
  Transmission Date: 20220423
  Serious: No
  Sender: FDA-Public Use
  Company Number: None

PATIENT
  Age: 36 Year
  Sex: Female
  Weight: 57.61 kg

DRUGS (3)
  1. GAMUNEX-C [Suspect]
     Active Substance: HUMAN IMMUNOGLOBULIN G
  2. MAPAP 500mg Oral [Concomitant]
  3. Diphenhydramine 25mg Oral [Concomitant]

REACTIONS (3)
  - Oral mucosal blistering [None]
  - Oral mucosal erythema [None]
  - Purulence [None]

NARRATIVE: CASE EVENT DATE: 20220114
